FAERS Safety Report 9571402 (Version 2)
Quarter: 2013Q4

REPORT INFORMATION
  Report Type: Spontaneous
  Country: SE (occurrence: SE)
  Receive Date: 20131001
  Receipt Date: 20131213
  Transmission Date: 20140711
  Serious: Yes (Hospitalization)
  Sender: FDA-Public Use
  Company Number: SE-JNJFOC-20130917499

PATIENT
  Sex: 0

DRUGS (1)
  1. HALDOL [Suspect]
     Indication: PRODUCT USED FOR UNKNOWN INDICATION
     Dosage: 1X100ML
     Route: 048

REACTIONS (4)
  - Incorrect dose administered [Recovering/Resolving]
  - Medication error [Unknown]
  - Feeling abnormal [Unknown]
  - Memory impairment [Unknown]
